FAERS Safety Report 7371707-1 (Version None)
Quarter: 2011Q1

REPORT INFORMATION
  Report Type: 
  Country: None (occurrence: None)
  Receive Date: 20110324
  Receipt Date: 20110311
  Transmission Date: 20110831
  Serious: Yes (Hospitalization, Other)
  Sender: FDA-Public Use
  Company Number: PHHY2010NZ42980

PATIENT
  Sex: Male
  Weight: 56 kg

DRUGS (6)
  1. CALCIFEROL [Concomitant]
     Indication: OSTEOPOROSIS
     Dosage: 500000 IU, UNK
     Route: 048
  2. ACLASTA [Suspect]
     Indication: OSTEOPOROSIS
     Dosage: UNK
     Route: 042
     Dates: start: 20090318
  3. CALCIUM-SANDOZ [Concomitant]
     Indication: OSTEOPOROSIS
     Dosage: 500 MG, UNK
     Route: 048
     Dates: end: 20090101
  4. ACCUPRIL [Concomitant]
     Dosage: ONE DAILY
     Route: 048
     Dates: start: 20100101
  5. AREDIA [Suspect]
  6. DOXAZOSIN [Concomitant]
     Dosage: ONE DAILY
     Route: 048
     Dates: start: 20020101

REACTIONS (1)
  - CHOLELITHIASIS [None]
